FAERS Safety Report 9672066 (Version 1)
Quarter: 2013Q4

REPORT INFORMATION
  Report Type: Spontaneous
  Country: US (occurrence: None)
  Receive Date: 20131105
  Receipt Date: 20131105
  Transmission Date: 20140711
  Serious: No
  Sender: FDA-Public Use
  Company Number: None

PATIENT
  Age: 74 Year
  Sex: Female
  Weight: 62.6 kg

DRUGS (5)
  1. PROLIA [Suspect]
     Indication: FRACTURE
     Dosage: 1  INJECTION  EVERY 6 MOS.
     Dates: start: 20120529, end: 20120529
  2. LEVOTHYROXINE [Concomitant]
  3. AMLODIPINE [Concomitant]
  4. ASPIRIN [Concomitant]
  5. CALCIUM CITRATE + D [Concomitant]

REACTIONS (7)
  - Arthralgia [None]
  - Back pain [None]
  - Chills [None]
  - Pyrexia [None]
  - Gastrointestinal pain [None]
  - Rash [None]
  - Pain [None]
